FAERS Safety Report 8474588-8 (Version None)
Quarter: 2012Q2

REPORT INFORMATION
  Report Type: 
  Country: None (occurrence: None)
  Receive Date: 20120628
  Receipt Date: 20120622
  Transmission Date: 20120825
  Serious: Yes (Death, Other)
  Sender: FDA-Public Use
  Company Number: GB-GENZYME-CLOF-1002192

PATIENT
  Sex: Male

DRUGS (2)
  1. EVOLTRA [Suspect]
     Indication: ACUTE MYELOID LEUKAEMIA
     Dosage: UNK
     Route: 065
     Dates: start: 20100601, end: 20110520
  2. DAUNORUBICIN HCL [Suspect]
     Indication: ACUTE MYELOID LEUKAEMIA
     Dosage: UNK
     Route: 065
     Dates: start: 20100601, end: 20110520

REACTIONS (2)
  - ACUTE MYELOID LEUKAEMIA RECURRENT [None]
  - SEPSIS [None]
